FAERS Safety Report 8343993-2 (Version None)
Quarter: 2012Q2

REPORT INFORMATION
  Report Type: 
  Country: None (occurrence: None)
  Receive Date: 20120508
  Receipt Date: 20120502
  Transmission Date: 20120825
  Serious: Yes (Hospitalization)
  Sender: FDA-Public Use
  Company Number: US-PFIZER INC-2012108915

PATIENT
  Age: 54 Year
  Sex: Male
  Weight: 95 kg

DRUGS (5)
  1. CYTOMEL [Suspect]
     Indication: GENERALISED RESISTANCE TO THYROID HORMONE
     Dosage: 100 UG, UNK
  2. ALBUTEROL [Concomitant]
  3. VERAPAMIL [Concomitant]
  4. LEVOTHYROXINE [Concomitant]
     Indication: THYROID THERAPY
     Dosage: 200 UG, UNK
  5. TERAZOSIN [Concomitant]

REACTIONS (1)
  - ATRIAL FIBRILLATION [None]
